FAERS Safety Report 25833847 (Version 1)
Quarter: 2025Q3

REPORT INFORMATION
  Report Type: Spontaneous
  Country: UA (occurrence: UA)
  Receive Date: 20250923
  Receipt Date: 20250923
  Transmission Date: 20251020
  Serious: Yes (Other)
  Sender: NOVARTIS
  Company Number: UA-002147023-NVSC2025UA142894

PATIENT
  Age: 13 Year
  Sex: Male

DRUGS (1)
  1. IMATINIB [Suspect]
     Active Substance: IMATINIB
     Indication: Philadelphia positive acute lymphocytic leukaemia
     Route: 065
     Dates: start: 2022

REACTIONS (7)
  - Mucosal inflammation [Unknown]
  - Myelosuppression [Unknown]
  - Leukopenia [Unknown]
  - Thrombocytopenia [Unknown]
  - Anaemia [Unknown]
  - Febrile neutropenia [Unknown]
  - Angular cheilitis [Unknown]
